FAERS Safety Report 8985867 (Version 1)
Quarter: 2012Q4

REPORT INFORMATION
  Report Type: 
  Country: DE (occurrence: DE)
  Receive Date: 20121226
  Receipt Date: 20121226
  Transmission Date: 20130627
  Serious: Yes (Hospitalization, Other)
  Sender: FDA-Public Use
  Company Number: DE-AMGEN-DEUSP2012082437

PATIENT
  Age: 64 Year
  Sex: Female
  Weight: 65 kg

DRUGS (9)
  1. ARANESP [Suspect]
     Indication: ANAEMIA PROPHYLAXIS
     Dosage: 300 mug, q2wk
     Route: 058
     Dates: start: 20070703, end: 20070910
  2. CAPECITABINE [Suspect]
     Indication: BREAST CANCER METASTATIC
     Dosage: 1000 mg/m2, bid
     Route: 042
     Dates: start: 20070828, end: 20071002
  3. TAXOL [Suspect]
     Indication: BREAST CANCER METASTATIC
     Dosage: 67.5 mg/m2, qwk
     Route: 042
     Dates: start: 20070828, end: 20071002
  4. EPIRUBICIN [Suspect]
     Indication: BREAST CANCER METASTATIC
     Dosage: 195 mg, q2wk
     Route: 042
     Dates: start: 20070703, end: 20070814
  5. CYCLOPHOSPHAMIDE [Suspect]
     Indication: BREAST CANCER METASTATIC
     Dosage: UNK UNK, q2wk
     Dates: start: 20070703, end: 20070814
  6. KEVATRIL [Concomitant]
     Indication: NAUSEA
     Route: 042
  7. FORTECORTIN                        /00016001/ [Concomitant]
     Dosage: 4 UNK, UNK
     Dates: start: 20070904, end: 20070904
  8. TAVEGIL                            /00137202/ [Concomitant]
     Indication: HYPERSENSITIVITY
     Dosage: 2 mg, one time dose
     Route: 042
  9. RANITIC [Concomitant]
     Indication: HYPERSENSITIVITY
     Dosage: 50 mg, UNK
     Route: 042
     Dates: start: 20070904, end: 20070904

REACTIONS (3)
  - General physical health deterioration [Recovered/Resolved]
  - Haemorrhage [Unknown]
  - Deep vein thrombosis [Not Recovered/Not Resolved]
